FAERS Safety Report 5988183-3 (Version None)
Quarter: 2008Q4

REPORT INFORMATION
  Report Type: 
  Country: None (occurrence: None)
  Receive Date: 20081203
  Receipt Date: 20081117
  Transmission Date: 20090506
  Serious: Yes (Other)
  Sender: FDA-Public Use
  Company Number: IPS_01349_2008

PATIENT
  Sex: Male

DRUGS (7)
  1. APO-GO (APO-GO - APOMORPHINE HYDROCHLORIDE) (NOT SPECIFIED) [Suspect]
     Indication: PARKINSON'S DISEASE
     Dosage: 5.5 MG PER HOUR SUBCUTANEOUS
     Route: 058
     Dates: start: 20081002
  2. APO-GO (APO-GO - APOMORPHINE HYDROCHLORIDE) (NOT SPECIFIED) [Suspect]
     Indication: PARKINSON'S DISEASE
     Dosage: 5 MG PER HOUR FOR 20 WEEKS 1 DAY [FROM 07:15 H. TO 22:20 H. DAILY] SUBCUTANEOUS
     Route: 058
     Dates: start: 20080515, end: 20081002
  3. NACOM 100 [Concomitant]
  4. COMTESS [Concomitant]
  5. NACOM RET [Concomitant]
  6. ASPIRIN [Concomitant]
  7. LEPONEX [Concomitant]

REACTIONS (3)
  - INJECTION SITE INFECTION [None]
  - SKIN BACTERIAL INFECTION [None]
  - SKIN NECROSIS [None]
